FAERS Safety Report 18166252 (Version 1)
Quarter: 2020Q3

REPORT INFORMATION
  Report Type: Spontaneous
  Country: GB (occurrence: GB)
  Receive Date: 20200819
  Receipt Date: 20200819
  Transmission Date: 20201103
  Serious: Yes (Other)
  Sender: FDA-Public Use
  Company Number: GB-BIO PRODUCTS LABORATORY LTD-2088779

PATIENT
  Sex: Female

DRUGS (4)
  1. TERBUTALINE [Concomitant]
     Active Substance: TERBUTALINE
     Route: 064
  2. GENERIC IVIG [Suspect]
     Active Substance: HUMAN IMMUNOGLOBULIN G
     Indication: HEART BLOCK CONGENITAL
     Route: 064
  3. HYDROCORTISONE. [Concomitant]
     Active Substance: HYDROCORTISONE
     Route: 064
  4. DEXAMETHASONE. [Concomitant]
     Active Substance: DEXAMETHASONE
     Route: 064

REACTIONS (5)
  - Foetal exposure during pregnancy [Unknown]
  - Hepatic enzyme abnormal [Unknown]
  - Drug ineffective for unapproved indication [Unknown]
  - Product use in unapproved indication [Unknown]
  - Heart block congenital [Unknown]
